FAERS Safety Report 8107754-1 (Version None)
Quarter: 2012Q1

REPORT INFORMATION
  Report Type: 
  Country: None (occurrence: None)
  Receive Date: 20120202
  Receipt Date: 20120124
  Transmission Date: 20120608
  Serious: Yes (Other)
  Sender: FDA-Public Use
  Company Number: DE-JNJFOC-20120111878

PATIENT
  Sex: Male
  Weight: 87 kg

DRUGS (1)
  1. XARELTO [Suspect]
     Indication: ATRIAL FIBRILLATION
     Route: 048
     Dates: start: 20120106, end: 20120121

REACTIONS (3)
  - HYPOTENSION [None]
  - FALL [None]
  - WOUND HAEMORRHAGE [None]
